FAERS Safety Report 16691826 (Version 3)
Quarter: 2020Q3

REPORT INFORMATION
  Report Type: Report from Study
  Country: US (occurrence: US)
  Receive Date: 20190812
  Receipt Date: 20200702
  Transmission Date: 20201102
  Serious: No
  Sender: FDA-Public Use
  Company Number: PHEH2019US033107

PATIENT
  Age: 65 Year
  Sex: Male

DRUGS (1)
  1. ENTRESTO [Suspect]
     Active Substance: SACUBITRIL\VALSARTAN
     Indication: CARDIAC FAILURE
     Dosage: 97 MG, BID
     Route: 048
     Dates: start: 20190707

REACTIONS (3)
  - Weight fluctuation [Unknown]
  - Blood pressure increased [Unknown]
  - Back pain [Unknown]

NARRATIVE: CASE EVENT DATE: 20200204
